FAERS Safety Report 8311377-9 (Version None)
Quarter: 2012Q2

REPORT INFORMATION
  Report Type: 
  Country: None (occurrence: None)
  Receive Date: 20120425
  Receipt Date: 20120416
  Transmission Date: 20120825
  Serious: Yes (Hospitalization, Other)
  Sender: FDA-Public Use
  Company Number: US-ASTRAZENECA-2012SE06490

PATIENT
  Age: 78 Year
  Sex: Female
  Weight: 83.5 kg

DRUGS (44)
  1. TIZANIDINE HCL [Concomitant]
     Route: 048
     Dates: start: 20111208
  2. PERSANTINE [Concomitant]
     Route: 048
     Dates: start: 20100302
  3. POTASSIUM CHLORIDE CRYS CR [Concomitant]
     Route: 048
     Dates: start: 20100302
  4. PEPCID [Concomitant]
     Indication: GASTRITIS
     Route: 048
     Dates: start: 20101112
  5. ALBUTEROL SULFATE [Concomitant]
     Dosage: 2.5 MG/3ML, USE 1 VIAL EVERY 2-4 HOURS VIA NEBULISER
     Dates: start: 20101112
  6. AVAPRO [Concomitant]
     Route: 048
     Dates: start: 20110805
  7. GARLIC [Concomitant]
     Route: 048
     Dates: start: 20100413
  8. SPIRIVA [Concomitant]
     Dosage: 18 MCG, INHALE CONTENTS OF ONE CAPSULE VIA HANDIHALER, ONCE DAILY
     Dates: start: 20110805
  9. ZANAFLEX [Concomitant]
     Dosage: TAKE 1 DF TWO TIMES DAILY AS NEEDED
     Route: 048
     Dates: start: 20100624
  10. CRANBERRY [Concomitant]
     Dates: start: 20100413
  11. CRESTOR [Suspect]
     Route: 048
     Dates: start: 20100302
  12. SYMBICORT [Suspect]
     Indication: CHRONIC OBSTRUCTIVE PULMONARY DISEASE
     Dosage: 160/4.5 MCG, TWO PUFFS, TWO TIMES A DAY
     Route: 055
     Dates: start: 20100302
  13. ISOSORBIDE MONONITRATE CR [Concomitant]
     Route: 048
     Dates: start: 20110805
  14. NITROGLYCERIN [Concomitant]
     Dates: start: 20100302
  15. TRAMADOL HCL [Concomitant]
     Indication: PAIN
     Dosage: 50 MG, TAKE 1-2 TABLETS EVERY 4-6 HOURS, AS REQUIRED
     Route: 048
     Dates: start: 20100302
  16. ZANAFLEX [Concomitant]
     Indication: MUSCLE SPASMS
     Dosage: ONE HALF TABLET EVERY MONDAY, WEDNESDAY, FRIDAY
     Route: 048
     Dates: start: 20100302
  17. IMDUR [Concomitant]
     Route: 048
     Dates: start: 20100302
  18. LOVENOX [Concomitant]
     Dosage: 100 MG/ML: 1 ML EVERY 12 HOURS
     Dates: start: 20101109
  19. LOSARTAN POTASSIUM [Concomitant]
     Route: 048
     Dates: start: 20120207
  20. BYSTOLIC [Concomitant]
     Indication: BLOOD PRESSURE ABNORMAL
     Route: 048
     Dates: start: 20111208
  21. MOBIC [Concomitant]
     Route: 048
     Dates: start: 20100302
  22. TIOTROPIUM BROMIDE MONOHYDRATE [Concomitant]
     Route: 055
     Dates: start: 20100302
  23. DIPYRIDAMOLE [Concomitant]
     Route: 048
     Dates: start: 20110805
  24. LASIX [Concomitant]
     Dosage: TWO TIMES A DAY, EXCEPT ON MONDAY, WEDNESDAY, FRIDAY
     Route: 048
     Dates: start: 20100302
  25. MIRALAX [Concomitant]
     Dosage: 17 GRAMS IN WATER, DAILY
     Dates: start: 20100302
  26. VITAMIN D [Concomitant]
     Dosage: 2000 UNIT, ONE DAILY
     Route: 048
     Dates: start: 20100413
  27. LANCET DEVICE [Concomitant]
     Dosage: THREE TIMES A DAY
     Dates: start: 20100302
  28. PRILOSEC OTC [Suspect]
     Route: 048
     Dates: start: 20100302
  29. ALBUTEROL [Concomitant]
     Indication: DYSPNOEA
     Dosage: 90 MCG, TWO PUFFS, 4-6 HOURS, AS REQUIRED
     Dates: start: 20101206
  30. CHERATUSSIN AC [Concomitant]
     Indication: COUGH
     Dosage: 100-10MG/5ML, AS REQUIRED
     Route: 048
     Dates: start: 20111220
  31. ZAROXOLYN [Concomitant]
     Dosage: 1 DF ON MONDAY, WEDNESDAY, FRIDAY BEFORE MORNING LASIX
     Dates: start: 20100302
  32. BENICAR [Concomitant]
     Route: 048
     Dates: start: 20100302
  33. CO Q-10 [Concomitant]
     Dates: start: 20100810
  34. ULTRAM [Concomitant]
     Dosage: 1-2 EVERY 6-R HOURS AS NEEDED DAILY
     Route: 048
     Dates: start: 20101108
  35. ALBUTEROL SULFATE [Concomitant]
     Dosage: 2.5 MG/3ML, USE 1 VIAL EVERY 4-6 HOURS VIA NEBULISER
     Dates: start: 20100302
  36. SPIRONOLACTONE [Concomitant]
     Route: 048
  37. ALDACTONE [Concomitant]
     Route: 048
     Dates: start: 20100302
  38. COUMADIN [Concomitant]
     Dosage: 2 PILLS FOR 2 DAYS THEN 1 PILL DAILY
     Dates: start: 20101109
  39. AVELOX [Concomitant]
     Dates: start: 20101112
  40. PEPCID [Concomitant]
     Indication: GASTROOESOPHAGEAL REFLUX DISEASE
     Route: 048
     Dates: start: 20101112
  41. PRILOSEC OTC [Suspect]
     Route: 048
     Dates: start: 20110106
  42. ALBUTEROL [Concomitant]
     Indication: WHEEZING
     Dosage: 90 MCG, TWO PUFFS, 4-6 HOURS, AS REQUIRED
     Dates: start: 20101206
  43. COREG [Concomitant]
     Indication: BLOOD PRESSURE
     Route: 048
     Dates: start: 20100302
  44. NORCO [Concomitant]
     Indication: PAIN
     Dosage: 5-325 MG, ONE EVERY 4 HOURS AS NEEDED
     Dates: start: 20110516

REACTIONS (30)
  - RIB FRACTURE [None]
  - ARTHRALGIA [None]
  - FALL [None]
  - CELLULITIS [None]
  - DIVERTICULITIS [None]
  - ASTHMA [None]
  - PNEUMONIA [None]
  - ROTATOR CUFF SYNDROME [None]
  - RENAL FAILURE [None]
  - ABDOMINAL PAIN LOWER [None]
  - CONTUSION [None]
  - DEEP VEIN THROMBOSIS [None]
  - BRONCHITIS [None]
  - CHEST PAIN [None]
  - DIZZINESS [None]
  - EMBOLISM VENOUS [None]
  - ARTERIOSCLEROSIS CORONARY ARTERY [None]
  - TYPE 2 DIABETES MELLITUS [None]
  - GASTROOESOPHAGEAL REFLUX DISEASE [None]
  - HYPERCHOLESTEROLAEMIA [None]
  - ESSENTIAL HYPERTENSION [None]
  - CARDIAC FAILURE CONGESTIVE [None]
  - BACK PAIN [None]
  - CHRONIC OBSTRUCTIVE PULMONARY DISEASE [None]
  - MITRAL VALVE INCOMPETENCE [None]
  - SCIATICA [None]
  - PULMONARY FUNCTION TEST ABNORMAL [None]
  - TRAUMATIC LUNG INJURY [None]
  - VITAMIN D DEFICIENCY [None]
  - ABDOMINAL HERNIA [None]
